FAERS Safety Report 24561568 (Version 1)
Quarter: 2024Q4

REPORT INFORMATION
  Report Type: Spontaneous
  Country: GB (occurrence: GB)
  Receive Date: 20241029
  Receipt Date: 20241029
  Transmission Date: 20250115
  Serious: Yes (Other)
  Sender: DAIICHI
  Company Number: None

PATIENT
  Age: 77 Year
  Sex: Male
  Weight: 103 kg

DRUGS (8)
  1. EDOXABAN [Suspect]
     Active Substance: EDOXABAN
     Indication: Ill-defined disorder
     Dosage: UNK
     Route: 065
  2. RAMIPRIL [Concomitant]
     Active Substance: RAMIPRIL
     Indication: Ill-defined disorder
     Dosage: UNK (ONE DAILY FOR 2W THEN TWO DAILY FOR 1W ( THEN R...)
     Route: 065
     Dates: start: 20240111
  3. BISOPROLOL [Concomitant]
     Active Substance: BISOPROLOL\BISOPROLOL FUMARATE
     Indication: Ill-defined disorder
     Dosage: 1 DOSAGE FORM, QD (ONE TABLET TO BE TAKEN ONCE A DAY)
     Route: 065
     Dates: start: 20240927
  4. DALTEPARIN [Concomitant]
     Active Substance: DALTEPARIN
     Indication: Ill-defined disorder
     Dosage: UNK, QD (TO BE ADMINISTERED BY SC INJECTION ONCE A DAY)
     Route: 058
     Dates: start: 20240930, end: 20241005
  5. NITROGLYCERIN [Concomitant]
     Active Substance: NITROGLYCERIN
     Indication: Ill-defined disorder
     Dosage: UNK (USE ONE TO TWO SPRAYS UNDER THE TONGUE WHEN REQ...)
     Route: 065
     Dates: start: 20240111
  6. WARFARIN SODIUM [Concomitant]
     Active Substance: WARFARIN SODIUM
     Indication: Ill-defined disorder
     Dosage: UNK (TAKE AS DIRECTED ACCORDING TO INR RESULT)
     Route: 065
     Dates: start: 20240111
  7. OMEPRAZOLE [Concomitant]
     Active Substance: OMEPRAZOLE
     Indication: Gastric pH decreased
     Dosage: UNK UNK, QD (TAKE ONE DAILY TO REDUCE STOMACH ACID)
     Route: 065
     Dates: start: 20240226
  8. EZETIMIBE [Concomitant]
     Active Substance: EZETIMIBE
     Indication: Blood cholesterol abnormal
     Dosage: 1 DOSAGE FORM, QD ONE TABLET TO BE TAKEN ONCE A DAY FOR CHOLESTEROL
     Route: 065
     Dates: start: 20240305

REACTIONS (2)
  - Anal ulcer [Recovered/Resolved]
  - Rectal haemorrhage [Recovered/Resolved]
